FAERS Safety Report 8912340 (Version 1)
Quarter: 2012Q4

REPORT INFORMATION
  Report Type: 
  Country: US (occurrence: US)
  Receive Date: 20121115
  Receipt Date: 20121115
  Transmission Date: 20130627
  Serious: No
  Sender: FDA-Public Use
  Company Number: US-ASTRAZENECA-2011SE34248

PATIENT
  Age: 79 Year
  Sex: Female

DRUGS (3)
  1. NEXIUM [Suspect]
     Route: 048
  2. GAS X [Concomitant]
  3. TUMS [Concomitant]

REACTIONS (4)
  - Gastrooesophageal reflux disease [Unknown]
  - Accident [Unknown]
  - Malaise [Unknown]
  - Drug dose omission [Unknown]
